FAERS Safety Report 5167768-0 (Version None)
Quarter: 2006Q4

REPORT INFORMATION
  Report Type: 
  Country: None (occurrence: None)
  Receive Date: 20061204
  Receipt Date: 20061204
  Transmission Date: 20070319
  Serious: No
  Sender: FDA-Public Use
  Company Number: None

PATIENT
  Age: 34 Year
  Sex: Female
  Weight: 61.2356 kg

DRUGS (1)
  1. LUPRON [Suspect]
     Indication: ENDOMETRIOSIS
     Dates: start: 20060811, end: 20060811

REACTIONS (9)
  - FATIGUE [None]
  - HEADACHE [None]
  - HOT FLUSH [None]
  - IRRITABILITY [None]
  - LIBIDO DECREASED [None]
  - MENTAL DISORDER [None]
  - MYALGIA [None]
  - PARALYSIS [None]
  - WEIGHT INCREASED [None]
